FAERS Safety Report 13650760 (Version 3)
Quarter: 2017Q2

REPORT INFORMATION
  Report Type: Report from Study
  Country: DK (occurrence: DK)
  Receive Date: 20170614
  Receipt Date: 20170625
  Transmission Date: 20170830
  Serious: Yes (Hospitalization, Other)
  Sender: FDA-Public Use
  Company Number: DK-TEVA-776098ACC

PATIENT
  Age: 70 Year
  Sex: Female
  Weight: 62 kg

DRUGS (9)
  1. PF-04950615 [Suspect]
     Active Substance: BOCOCIZUMAB
     Indication: CARDIOVASCULAR DISORDER
     Route: 058
     Dates: start: 20141210, end: 20150204
  2. ASPIRIN. [Concomitant]
     Active Substance: ASPIRIN
     Dosage: 75 MILLIGRAM DAILY; 75 MG, QD
     Route: 048
     Dates: start: 20100427
  3. SIMVASTATIN. [Suspect]
     Active Substance: SIMVASTATIN
     Indication: HYPERCHOLESTEROLAEMIA
     Dosage: 40 MILLIGRAM DAILY; 40 MG, QD
     Route: 048
     Dates: start: 20150506, end: 20150627
  4. LOSARTAN POTASSIUM. [Concomitant]
     Active Substance: LOSARTAN POTASSIUM
     Indication: HYPERTENSION
     Dosage: 100 MILLIGRAM DAILY; 100 MG, QD
     Route: 048
     Dates: start: 20120124
  5. ESTRADIOL. [Concomitant]
     Active Substance: ESTRADIOL
     Indication: HORMONE THERAPY
     Dosage: 10 MG, QW
     Route: 067
     Dates: start: 1972
  6. PANTOPRAZOLE [Concomitant]
     Active Substance: PANTOPRAZOLE
     Indication: DIVERTICULUM
     Dosage: 40 MILLIGRAM DAILY; 40 MG, QD
     Route: 048
     Dates: start: 20150216
  7. MAGNESIUM CHLORIDE. [Concomitant]
     Active Substance: MAGNESIUM CHLORIDE
     Indication: DIVERTICULUM
     Dosage: 1000 MILLIGRAM DAILY; 500 MG, BID
     Route: 048
     Dates: start: 2013
  8. CLOPIDOGREL [Concomitant]
     Active Substance: CLOPIDOGREL BISULFATE
     Indication: ARTERIOSCLEROSIS
     Dosage: 75 MILLIGRAM DAILY; 75 MG, QD
     Route: 048
     Dates: start: 20120124
  9. METOPROLOL. [Concomitant]
     Active Substance: METOPROLOL
     Indication: HYPERTENSION
     Dosage: 50 MILLIGRAM DAILY; 50 MG, QD
     Route: 048
     Dates: start: 20100428

REACTIONS (2)
  - Pancreatitis [Recovered/Resolved]
  - Sepsis [Recovered/Resolved]

NARRATIVE: CASE EVENT DATE: 20150627
